FAERS Safety Report 7068234-8 (Version None)
Quarter: 2010Q4

REPORT INFORMATION
  Report Type: 
  Country: None (occurrence: None)
  Receive Date: 20101028
  Receipt Date: 20101019
  Transmission Date: 20110411
  Serious: Yes (Life-Threatening, Hospitalization, Disabling, Other)
  Sender: FDA-Public Use
  Company Number: DE-MILLENNIUM PHARMACEUTICALS, INC.-2010-04313

PATIENT

DRUGS (7)
  1. VELCADE [Suspect]
     Indication: MULTIPLE MYELOMA
     Dosage: 2.6 MG, UNK
     Route: 042
     Dates: start: 20100719, end: 20100811
  2. FORTECORTIN [Suspect]
     Indication: MULTIPLE MYELOMA
     Dosage: 20 MG, UNK
     Route: 048
     Dates: start: 20100719
  3. ISOSORBIDE DINITRATE [Concomitant]
     Indication: HYPERTENSION
     Dosage: 1.25 DF, UNK
     Dates: start: 20100730, end: 20100730
  4. RAMIPRIL [Concomitant]
     Indication: HYPERTENSION
     Dosage: 5 MG, UNK
     Route: 048
     Dates: start: 20100803
  5. GABAPENTIN [Concomitant]
     Indication: POLYNEUROPATHY
     Dosage: 300 MG, BID
     Route: 048
     Dates: start: 20100727
  6. DURAGESIC-100 [Concomitant]
     Indication: PAIN
     Dosage: 100 UG, UNK
     Route: 062
     Dates: start: 20100811
  7. FENTANYL [Concomitant]
     Indication: PAIN
     Dosage: 400 UG, UNK
     Route: 045
     Dates: start: 20100811

REACTIONS (4)
  - HYPERTENSION [None]
  - INTERMITTENT CLAUDICATION [None]
  - MYOCARDIAL INFARCTION [None]
  - PAIN IN EXTREMITY [None]
